FAERS Safety Report 7953148-9 (Version None)
Quarter: 2011Q4

REPORT INFORMATION
  Report Type: 
  Country: None (occurrence: None)
  Receive Date: 20111201
  Receipt Date: 20111019
  Transmission Date: 20120403
  Serious: Yes (Other)
  Sender: FDA-Public Use
  Company Number: US-ROCHE-1017289

PATIENT
  Sex: Female
  Weight: 62.3 kg

DRUGS (1)
  1. XELODA [Suspect]
     Indication: BREAST CANCER METASTATIC
     Dosage: XELODA CYCLE: 03 WEEKS ON/01 WEEK OFF
     Route: 048
     Dates: start: 20111012

REACTIONS (8)
  - CELLULITIS [None]
  - NAUSEA [None]
  - AMNESIA [None]
  - DIARRHOEA [None]
  - NERVOUSNESS [None]
  - PRURITUS [None]
  - INSOMNIA [None]
  - BREAST CANCER [None]
